FAERS Safety Report 8219444-5 (Version None)
Quarter: 2012Q1

REPORT INFORMATION
  Report Type: 
  Country: None (occurrence: None)
  Receive Date: 20120319
  Receipt Date: 20120307
  Transmission Date: 20120608
  Serious: Yes (Other)
  Sender: FDA-Public Use
  Company Number: US-ELI_LILLY_AND_COMPANY-US201203003225

PATIENT
  Sex: Female

DRUGS (1)
  1. HUMATROPE [Suspect]
     Indication: HYPOPITUITARISM
     Dosage: UNK, UNKNOWN

REACTIONS (6)
  - RIB FRACTURE [None]
  - FRACTURE [None]
  - CATARACT [None]
  - WEIGHT INCREASED [None]
  - THYROID DISORDER [None]
  - BONE DISORDER [None]
